FAERS Safety Report 16393373 (Version 1)
Quarter: 2019Q2

REPORT INFORMATION
  Report Type: Spontaneous
  Country: JP (occurrence: JP)
  Receive Date: 20190605
  Receipt Date: 20190605
  Transmission Date: 20190711
  Serious: Yes (Other)
  Sender: FDA-Public Use
  Company Number: JP-PFIZER INC-2019229942

PATIENT
  Age: 92 Year
  Sex: Female

DRUGS (4)
  1. LYRICA [Concomitant]
     Active Substance: PREGABALIN
     Dosage: 50 MG, DAILY
     Route: 048
     Dates: start: 2018
  2. PREDONINE [Concomitant]
     Active Substance: PREDNISOLONE
  3. RECALBON [Concomitant]
     Active Substance: MINODRONIC ACID
  4. CELECOX [Suspect]
     Active Substance: CELECOXIB
     Dosage: 200 MG, DAILY
     Route: 048

REACTIONS (1)
  - Perforation [Recovered/Resolved]
